FAERS Safety Report 7236648-9 (Version None)
Quarter: 2011Q1

REPORT INFORMATION
  Report Type: 
  Country: None (occurrence: None)
  Receive Date: 20110112
  Receipt Date: 20101230
  Transmission Date: 20110831
  Serious: Yes (Other)
  Sender: FDA-Public Use
  Company Number: 2010P1003193

PATIENT
  Age: 6 Year
  Sex: Female
  Weight: 18.5975 kg

DRUGS (1)
  1. OVIDE [Suspect]
     Indication: LICE INFESTATION
     Dosage: 0.5%-X1; TOP
     Route: 061
     Dates: start: 20101205, end: 20101205

REACTIONS (6)
  - PAIN [None]
  - SKIN DISCOLOURATION [None]
  - BLISTER [None]
  - CHEMICAL INJURY [None]
  - BURNS SECOND DEGREE [None]
  - SCAR [None]
